FAERS Safety Report 5348685-X (Version None)
Quarter: 2007Q2

REPORT INFORMATION
  Report Type: 
  Country: None (occurrence: None)
  Receive Date: 20070605
  Receipt Date: 20070525
  Transmission Date: 20071010
  Serious: Yes (Hospitalization, Other)
  Sender: FDA-Public Use
  Company Number: 2007BI009249

PATIENT
  Age: 39 Year
  Sex: Female

DRUGS (1)
  1. AVONEX [Suspect]
     Indication: MULTIPLE SCLEROSIS
     Dosage: 30 UG;QW;IM
     Route: 030
     Dates: start: 19960901, end: 20050701

REACTIONS (6)
  - ADVERSE DRUG REACTION [None]
  - ANKLE FRACTURE [None]
  - CONVULSION [None]
  - MULTIPLE SCLEROSIS [None]
  - OPEN FRACTURE [None]
  - PYREXIA [None]
